FAERS Safety Report 9708351 (Version 3)
Quarter: 2013Q4

REPORT INFORMATION
  Report Type: Report from Study
  Country: US (occurrence: US)
  Receive Date: 20131125
  Receipt Date: 20131209
  Transmission Date: 20140711
  Serious: Yes (Death, Hospitalization)
  Sender: FDA-Public Use
  Company Number: US-ACTELION-A-US2013-90052

PATIENT
  Age: 57 Year
  Sex: Female

DRUGS (1)
  1. VELETRI [Suspect]
     Indication: COR PULMONALE CHRONIC
     Dosage: 22 NG/KG, PER MIN
     Route: 042
     Dates: start: 20130922

REACTIONS (4)
  - Death [Fatal]
  - Clostridium difficile infection [Unknown]
  - Abdominal pain [Unknown]
  - Diarrhoea [Unknown]
